FAERS Safety Report 24745086 (Version 1)
Quarter: 2024Q4

REPORT INFORMATION
  Report Type: Other
  Country: US (occurrence: US)
  Receive Date: 20241217
  Receipt Date: 20241217
  Transmission Date: 20250115
  Serious: Yes (Life-Threatening, Hospitalization, Other)
  Sender: COREPHARMA LLC
  Company Number: US-CorePharma LLC-2167301

PATIENT
  Age: 47 Year
  Sex: Male

DRUGS (3)
  1. AMLODIPINE BESYLATE [Suspect]
     Active Substance: AMLODIPINE BESYLATE
     Indication: Product used for unknown indication
  2. TRIAMTERENE AND HYDROCHLOROTHIAZIDE [Suspect]
     Active Substance: HYDROCHLOROTHIAZIDE\TRIAMTERENE
  3. AMITRIPTYLINE HYDROCHLORIDE [Suspect]
     Active Substance: AMITRIPTYLINE HYDROCHLORIDE

REACTIONS (11)
  - Distributive shock [Unknown]
  - Intentional overdose [Unknown]
  - Intentional overdose [Unknown]
  - Toxicity to various agents [Unknown]
  - Ejection fraction abnormal [Unknown]
  - Echocardiogram abnormal [Unknown]
  - Electrocardiogram ST segment depression [Unknown]
  - Shock [Unknown]
  - Hepatic function abnormal [Unknown]
  - Acute kidney injury [Unknown]
  - Respiratory failure [Unknown]
